FAERS Safety Report 21825042 (Version 2)
Quarter: 2023Q1

REPORT INFORMATION
  Report Type: Spontaneous
  Country: US (occurrence: US)
  Receive Date: 20230105
  Receipt Date: 20230118
  Transmission Date: 20230418
  Serious: Yes (Hospitalization)
  Sender: FDA-Public Use
  Company Number: US-TEVA-2022-US-2841420

PATIENT
  Age: 3 Month
  Sex: Female

DRUGS (8)
  1. METHOTREXATE [Suspect]
     Active Substance: METHOTREXATE
     Indication: Infantile fibromatosis
     Route: 065
  2. VINBLASTINE [Suspect]
     Active Substance: VINBLASTINE
     Indication: Infantile fibromatosis
     Route: 065
  3. IMATINIB [Interacting]
     Active Substance: IMATINIB
     Indication: Infantile fibromatosis
     Dosage: 22.6 MG/KG DAILY;
     Route: 065
  4. IMATINIB [Interacting]
     Active Substance: IMATINIB
     Indication: Evidence based treatment
  5. FAMOTIDINE [Interacting]
     Active Substance: FAMOTIDINE
     Indication: Product used for unknown indication
     Route: 042
  6. PANTOPRAZOLE [Interacting]
     Active Substance: PANTOPRAZOLE
     Indication: Product used for unknown indication
     Route: 042
  7. OCTREOTIDE [Interacting]
     Active Substance: OCTREOTIDE
     Indication: Product used for unknown indication
     Route: 042
  8. ESOMEPRAZOLE [Interacting]
     Active Substance: ESOMEPRAZOLE
     Indication: Product used for unknown indication
     Route: 042

REACTIONS (2)
  - Drug ineffective [Unknown]
  - Drug interaction [Unknown]
